FAERS Safety Report 15682732 (Version 29)
Quarter: 2025Q3

REPORT INFORMATION
  Report Type: Spontaneous
  Country: CA (occurrence: CA)
  Receive Date: 20181203
  Receipt Date: 20250822
  Transmission Date: 20251021
  Serious: Yes (Death, Life-Threatening, Hospitalization, Disabling, Congenital Anomaly, Other)
  Sender: NOVARTIS
  Company Number: PHHY2018CA168554

PATIENT
  Age: 43 Year
  Sex: Female
  Weight: 68 kg

DRUGS (200)
  1. COSENTYX [Suspect]
     Active Substance: SECUKINUMAB
     Indication: Psoriatic arthropathy
     Route: 065
  2. COSENTYX [Suspect]
     Active Substance: SECUKINUMAB
     Indication: Rheumatoid arthritis
     Route: 065
  3. COSENTYX [Suspect]
     Active Substance: SECUKINUMAB
     Route: 005
  4. COSENTYX [Suspect]
     Active Substance: SECUKINUMAB
     Route: 065
  5. COSENTYX [Suspect]
     Active Substance: SECUKINUMAB
     Route: 065
  6. AIMOVIG [Suspect]
     Active Substance: ERENUMAB-AOOE
     Indication: Migraine
     Route: 065
  7. AIMOVIG [Suspect]
     Active Substance: ERENUMAB-AOOE
     Route: 065
  8. AIMOVIG [Suspect]
     Active Substance: ERENUMAB-AOOE
     Route: 065
  9. AIMOVIG [Suspect]
     Active Substance: ERENUMAB-AOOE
     Route: 065
  10. AIMOVIG [Suspect]
     Active Substance: ERENUMAB-AOOE
     Route: 065
  11. AIMOVIG [Suspect]
     Active Substance: ERENUMAB-AOOE
     Route: 065
  12. ERELZI [Suspect]
     Active Substance: ETANERCEPT-SZZS
     Indication: Rheumatoid arthritis
     Route: 065
  13. ERELZI [Suspect]
     Active Substance: ETANERCEPT-SZZS
     Indication: Psoriatic arthropathy
     Route: 058
  14. ERELZI [Suspect]
     Active Substance: ETANERCEPT-SZZS
     Dosage: 5 MG, QW (1 EVERY 1 WEEK)
     Route: 065
  15. ERELZI [Suspect]
     Active Substance: ETANERCEPT-SZZS
     Dosage: 50 MG, QW (1 EVERY 1 WEEK)
     Route: 058
  16. ERELZI [Suspect]
     Active Substance: ETANERCEPT-SZZS
     Dosage: 50 MG, QW (1 EVERY 1 WEEK)
     Route: 058
  17. DICLOFENAC DIETHYLAMINE [Suspect]
     Active Substance: DICLOFENAC DIETHYLAMINE
     Indication: Product used for unknown indication
     Route: 065
  18. DICLOFENAC DIETHYLAMINE [Suspect]
     Active Substance: DICLOFENAC DIETHYLAMINE
     Route: 065
  19. LEFLUNOMIDE [Suspect]
     Active Substance: LEFLUNOMIDE
     Indication: Rheumatoid arthritis
     Route: 048
  20. LEFLUNOMIDE [Suspect]
     Active Substance: LEFLUNOMIDE
     Route: 048
  21. LEFLUNOMIDE [Suspect]
     Active Substance: LEFLUNOMIDE
     Route: 065
  22. LEFLUNOMIDE [Suspect]
     Active Substance: LEFLUNOMIDE
     Route: 065
  23. LEFLUNOMIDE [Suspect]
     Active Substance: LEFLUNOMIDE
     Dosage: 10 MG, QD
     Route: 065
  24. LEFLUNOMIDE [Suspect]
     Active Substance: LEFLUNOMIDE
     Dosage: 20 MG, QD
     Route: 065
  25. LEFLUNOMIDE [Suspect]
     Active Substance: LEFLUNOMIDE
     Route: 048
  26. CANDESARTAN [Suspect]
     Active Substance: CANDESARTAN
     Indication: Migraine
     Route: 048
  27. FOLIC ACID [Suspect]
     Active Substance: FOLIC ACID
     Indication: Rheumatoid arthritis
     Route: 048
  28. FOLIC ACID [Suspect]
     Active Substance: FOLIC ACID
     Route: 048
  29. FOLIC ACID [Suspect]
     Active Substance: FOLIC ACID
     Route: 065
  30. FOLIC ACID [Suspect]
     Active Substance: FOLIC ACID
     Route: 058
  31. FOLIC ACID [Suspect]
     Active Substance: FOLIC ACID
     Route: 065
  32. FOLIC ACID [Suspect]
     Active Substance: FOLIC ACID
     Route: 048
  33. FOLIC ACID [Suspect]
     Active Substance: FOLIC ACID
     Route: 048
  34. FOLIC ACID [Suspect]
     Active Substance: FOLIC ACID
     Route: 048
  35. FOLIC ACID [Suspect]
     Active Substance: FOLIC ACID
     Route: 065
  36. FOLIC ACID [Suspect]
     Active Substance: FOLIC ACID
     Route: 065
  37. FOLIC ACID [Suspect]
     Active Substance: FOLIC ACID
     Route: 065
  38. FOLIC ACID [Suspect]
     Active Substance: FOLIC ACID
     Route: 048
  39. FOLIC ACID [Suspect]
     Active Substance: FOLIC ACID
     Route: 065
  40. FOLIC ACID [Suspect]
     Active Substance: FOLIC ACID
     Route: 065
  41. FOLIC ACID [Suspect]
     Active Substance: FOLIC ACID
     Route: 048
  42. FOLIC ACID [Suspect]
     Active Substance: FOLIC ACID
     Dosage: 5 MG, Q24H ((1 EVERY 24 HOURS)
     Route: 065
  43. FOLIC ACID [Suspect]
     Active Substance: FOLIC ACID
     Route: 065
  44. FOLIC ACID [Suspect]
     Active Substance: FOLIC ACID
     Route: 065
  45. FOLIC ACID [Suspect]
     Active Substance: FOLIC ACID
     Route: 065
  46. FOLIC ACID [Suspect]
     Active Substance: FOLIC ACID
     Route: 065
  47. FOLIC ACID [Suspect]
     Active Substance: FOLIC ACID
     Route: 048
  48. FOLIC ACID [Suspect]
     Active Substance: FOLIC ACID
     Route: 048
  49. FOLIC ACID [Suspect]
     Active Substance: FOLIC ACID
     Route: 065
  50. FOLIC ACID [Suspect]
     Active Substance: FOLIC ACID
     Route: 065
  51. DICLOFENAC SODIUM [Suspect]
     Active Substance: DICLOFENAC SODIUM
     Indication: Product used for unknown indication
     Route: 065
  52. DICLOFENAC SODIUM [Suspect]
     Active Substance: DICLOFENAC SODIUM
     Route: 065
  53. DICLOFENAC SODIUM [Suspect]
     Active Substance: DICLOFENAC SODIUM
     Route: 047
  54. DICLOFENAC SODIUM [Suspect]
     Active Substance: DICLOFENAC SODIUM
     Route: 058
  55. MYCOPHENOLATE MOFETIL [Suspect]
     Active Substance: MYCOPHENOLATE MOFETIL
     Indication: Rheumatoid arthritis
     Route: 065
  56. MYCOPHENOLATE MOFETIL [Suspect]
     Active Substance: MYCOPHENOLATE MOFETIL
     Route: 048
  57. QUETIAPINE FUMARATE [Suspect]
     Active Substance: QUETIAPINE FUMARATE
     Indication: Product used for unknown indication
     Route: 003
  58. QUETIAPINE FUMARATE [Suspect]
     Active Substance: QUETIAPINE FUMARATE
     Route: 048
  59. OXYCODONE HYDROCHLORIDE [Suspect]
     Active Substance: OXYCODONE HYDROCHLORIDE
     Indication: Product used for unknown indication
     Route: 065
  60. OXYCODONE HYDROCHLORIDE [Suspect]
     Active Substance: OXYCODONE HYDROCHLORIDE
     Route: 065
  61. PANTOPRAZOLE [Suspect]
     Active Substance: PANTOPRAZOLE
     Indication: Dyspepsia
     Route: 065
  62. PANTOPRAZOLE [Suspect]
     Active Substance: PANTOPRAZOLE
     Route: 005
  63. PANTOPRAZOLE [Suspect]
     Active Substance: PANTOPRAZOLE
     Route: 065
  64. PANTOPRAZOLE [Suspect]
     Active Substance: PANTOPRAZOLE
     Route: 013
  65. PANTOPRAZOLE [Suspect]
     Active Substance: PANTOPRAZOLE
     Route: 016
  66. HYDROCORTISONE [Suspect]
     Active Substance: HYDROCORTISONE
     Indication: Rheumatoid arthritis
     Route: 065
  67. HYDROCORTISONE [Suspect]
     Active Substance: HYDROCORTISONE
     Route: 058
  68. HYDROCORTISONE [Suspect]
     Active Substance: HYDROCORTISONE
     Route: 065
  69. HYDROCORTISONE [Suspect]
     Active Substance: HYDROCORTISONE
     Route: 065
  70. METHOTREXATE [Suspect]
     Active Substance: METHOTREXATE
     Indication: Rheumatoid arthritis
     Route: 065
  71. METHOTREXATE [Suspect]
     Active Substance: METHOTREXATE
     Indication: Psoriatic arthropathy
     Route: 051
  72. METHOTREXATE [Suspect]
     Active Substance: METHOTREXATE
     Dosage: 25 MG, QW
     Route: 058
  73. METHOTREXATE [Suspect]
     Active Substance: METHOTREXATE
     Route: 048
  74. METHOTREXATE [Suspect]
     Active Substance: METHOTREXATE
     Dosage: 25 MG, QW
     Route: 013
  75. METHOTREXATE [Suspect]
     Active Substance: METHOTREXATE
     Dosage: UNK, QD
     Route: 048
  76. METHOTREXATE [Suspect]
     Active Substance: METHOTREXATE
     Route: 065
  77. METHOTREXATE [Suspect]
     Active Substance: METHOTREXATE
     Dosage: 25 MG, QD
     Route: 042
  78. METHOTREXATE [Suspect]
     Active Substance: METHOTREXATE
     Dosage: 20 MG, QW
     Route: 065
  79. METHOTREXATE [Suspect]
     Active Substance: METHOTREXATE
     Dosage: 20 MG, QD
     Route: 065
  80. METHOTREXATE [Suspect]
     Active Substance: METHOTREXATE
     Dosage: 1 DOSAGE FORM, QD
     Route: 048
  81. METHOTREXATE [Suspect]
     Active Substance: METHOTREXATE
     Dosage: 15 MG, QW
     Route: 048
  82. METHOTREXATE [Suspect]
     Active Substance: METHOTREXATE
     Dosage: 1 G, Q12H
     Route: 048
  83. METHOTREXATE [Suspect]
     Active Substance: METHOTREXATE
     Dosage: 1 DOSAGE FORM, Q24H
     Route: 048
  84. METHOTREXATE [Suspect]
     Active Substance: METHOTREXATE
     Route: 048
  85. METHOTREXATE [Suspect]
     Active Substance: METHOTREXATE
     Dosage: 2 DOSAGE FORM, Q24H
     Route: 065
  86. METHOTREXATE [Suspect]
     Active Substance: METHOTREXATE
     Dosage: 20 MG, QW
     Route: 013
  87. METHOTREXATE [Suspect]
     Active Substance: METHOTREXATE
     Route: 014
  88. METHOTREXATE [Suspect]
     Active Substance: METHOTREXATE
     Dosage: 20 MG, Q24H
     Route: 048
  89. METHOTREXATE [Suspect]
     Active Substance: METHOTREXATE
     Dosage: 25 MG, Q24H
     Route: 013
  90. METHOTREXATE [Suspect]
     Active Substance: METHOTREXATE
     Dosage: 25 MG, Q24H
     Route: 048
  91. METHOTREXATE [Suspect]
     Active Substance: METHOTREXATE
     Route: 058
  92. METHOTREXATE [Suspect]
     Active Substance: METHOTREXATE
     Dosage: 25 MG, QW
     Route: 013
  93. METHOTREXATE [Suspect]
     Active Substance: METHOTREXATE
     Dosage: 1 G, Q24H
     Route: 048
  94. METHOTREXATE [Suspect]
     Active Substance: METHOTREXATE
     Route: 065
  95. METHOTREXATE [Suspect]
     Active Substance: METHOTREXATE
     Route: 058
  96. METHOTREXATE [Suspect]
     Active Substance: METHOTREXATE
     Route: 048
  97. METHOTREXATE [Suspect]
     Active Substance: METHOTREXATE
     Dosage: 25 MG, QW
     Route: 048
  98. METHOTREXATE [Suspect]
     Active Substance: METHOTREXATE
     Dosage: 15 MG, Q24H
     Route: 048
  99. METHOTREXATE [Suspect]
     Active Substance: METHOTREXATE
     Dosage: 20 MG, QW
     Route: 048
  100. METHOTREXATE [Suspect]
     Active Substance: METHOTREXATE
     Route: 065
  101. METHOTREXATE [Suspect]
     Active Substance: METHOTREXATE
     Dosage: 15 MG, Q24H
     Route: 065
  102. METHOTREXATE [Suspect]
     Active Substance: METHOTREXATE
     Dosage: 20 MG, Q24H
     Route: 065
  103. METHOTREXATE [Suspect]
     Active Substance: METHOTREXATE
     Dosage: 20 MG, Q24H
     Route: 048
  104. METHOTREXATE [Suspect]
     Active Substance: METHOTREXATE
     Indication: Rheumatoid arthritis
     Route: 058
  105. METHOTREXATE [Suspect]
     Active Substance: METHOTREXATE
     Dosage: 25 MG, QW
     Route: 048
  106. METHOTREXATE [Suspect]
     Active Substance: METHOTREXATE
     Dosage: 20 MG, QD
     Route: 048
  107. METHOTREXATE [Suspect]
     Active Substance: METHOTREXATE
     Dosage: 1 G, BID
     Route: 048
  108. METHOTREXATE [Suspect]
     Active Substance: METHOTREXATE
     Dosage: 25 MG, BID
     Route: 048
  109. METHOTREXATE [Suspect]
     Active Substance: METHOTREXATE
     Dosage: 25 MG, QW
     Route: 013
  110. METHOTREXATE [Suspect]
     Active Substance: METHOTREXATE
     Route: 013
  111. METHOTREXATE [Suspect]
     Active Substance: METHOTREXATE
     Route: 048
  112. METHOTREXATE [Suspect]
     Active Substance: METHOTREXATE
     Route: 048
  113. METHOTREXATE [Suspect]
     Active Substance: METHOTREXATE
     Route: 065
  114. METHOTREXATE [Suspect]
     Active Substance: METHOTREXATE
     Route: 048
  115. METHOTREXATE [Suspect]
     Active Substance: METHOTREXATE
     Route: 016
  116. METHOTREXATE [Suspect]
     Active Substance: METHOTREXATE
     Route: 048
  117. METHOTREXATE [Suspect]
     Active Substance: METHOTREXATE
     Route: 065
  118. METHOTREXATE [Suspect]
     Active Substance: METHOTREXATE
     Dosage: 25 MG, QD
     Route: 048
  119. RITUXIMAB [Suspect]
     Active Substance: RITUXIMAB
     Indication: Rheumatoid arthritis
     Route: 042
  120. RITUXIMAB [Suspect]
     Active Substance: RITUXIMAB
     Route: 065
  121. RITUXIMAB [Suspect]
     Active Substance: RITUXIMAB
     Route: 058
  122. RITUXIMAB [Suspect]
     Active Substance: RITUXIMAB
     Route: 043
  123. RITUXIMAB [Suspect]
     Active Substance: RITUXIMAB
     Route: 041
  124. RITUXIMAB [Suspect]
     Active Substance: RITUXIMAB
     Route: 042
  125. RITUXIMAB [Suspect]
     Active Substance: RITUXIMAB
     Route: 042
  126. RITUXIMAB [Suspect]
     Active Substance: RITUXIMAB
     Route: 016
  127. RITUXIMAB [Suspect]
     Active Substance: RITUXIMAB
     Route: 016
  128. RITUXIMAB [Suspect]
     Active Substance: RITUXIMAB
     Route: 016
  129. DICLOFENAC POTASSIUM [Suspect]
     Active Substance: DICLOFENAC POTASSIUM
     Indication: Product used for unknown indication
     Route: 065
  130. ADALIMUMAB [Suspect]
     Active Substance: ADALIMUMAB
     Indication: Rheumatoid arthritis
     Route: 058
  131. ADALIMUMAB [Suspect]
     Active Substance: ADALIMUMAB
     Route: 058
  132. ADALIMUMAB [Suspect]
     Active Substance: ADALIMUMAB
     Route: 065
  133. ADALIMUMAB [Suspect]
     Active Substance: ADALIMUMAB
     Route: 058
  134. ADALIMUMAB [Suspect]
     Active Substance: ADALIMUMAB
     Route: 065
  135. ADALIMUMAB [Suspect]
     Active Substance: ADALIMUMAB
     Route: 058
  136. ALENDRONATE SODIUM [Suspect]
     Active Substance: ALENDRONATE SODIUM
     Indication: Rheumatoid arthritis
     Route: 065
  137. ALENDRONATE SODIUM [Suspect]
     Active Substance: ALENDRONATE SODIUM
     Route: 048
  138. ALENDRONATE SODIUM [Suspect]
     Active Substance: ALENDRONATE SODIUM
     Route: 048
  139. ALENDRONATE SODIUM [Suspect]
     Active Substance: ALENDRONATE SODIUM
     Route: 016
  140. ALENDRONATE SODIUM [Suspect]
     Active Substance: ALENDRONATE SODIUM
     Route: 005
  141. ALENDRONIC ACID [Suspect]
     Active Substance: ALENDRONIC ACID
     Indication: Rheumatoid arthritis
     Route: 048
  142. ALENDRONIC ACID [Suspect]
     Active Substance: ALENDRONIC ACID
     Route: 048
  143. ALENDRONIC ACID [Suspect]
     Active Substance: ALENDRONIC ACID
     Route: 016
  144. ALENDRONIC ACID [Suspect]
     Active Substance: ALENDRONIC ACID
     Route: 005
  145. ALENDRONIC ACID [Suspect]
     Active Substance: ALENDRONIC ACID
     Route: 048
  146. ALENDRONIC ACID [Suspect]
     Active Substance: ALENDRONIC ACID
     Route: 065
  147. PANTOPRAZOLE SODIUM [Suspect]
     Active Substance: PANTOPRAZOLE SODIUM
     Indication: Product used for unknown indication
     Route: 065
  148. PANTOPRAZOLE SODIUM [Suspect]
     Active Substance: PANTOPRAZOLE SODIUM
     Indication: Dyspepsia
     Route: 065
  149. PANTOPRAZOLE SODIUM [Suspect]
     Active Substance: PANTOPRAZOLE SODIUM
     Route: 065
  150. PANTOPRAZOLE SODIUM [Suspect]
     Active Substance: PANTOPRAZOLE SODIUM
     Route: 065
  151. PANTOPRAZOLE SODIUM [Suspect]
     Active Substance: PANTOPRAZOLE SODIUM
     Route: 065
  152. PANTOPRAZOLE SODIUM [Suspect]
     Active Substance: PANTOPRAZOLE SODIUM
     Route: 016
  153. PANTOPRAZOLE SODIUM [Suspect]
     Active Substance: PANTOPRAZOLE SODIUM
     Route: 065
  154. PANTOPRAZOLE SODIUM [Suspect]
     Active Substance: PANTOPRAZOLE SODIUM
     Route: 065
  155. PANTOPRAZOLE SODIUM [Suspect]
     Active Substance: PANTOPRAZOLE SODIUM
     Route: 065
  156. PANTOPRAZOLE SODIUM [Suspect]
     Active Substance: PANTOPRAZOLE SODIUM
     Route: 065
  157. PANTOPRAZOLE SODIUM [Suspect]
     Active Substance: PANTOPRAZOLE SODIUM
     Route: 065
  158. PANTOPRAZOLE SODIUM [Suspect]
     Active Substance: PANTOPRAZOLE SODIUM
     Route: 065
  159. PANTOPRAZOLE SODIUM [Suspect]
     Active Substance: PANTOPRAZOLE SODIUM
     Route: 048
  160. PANTOPRAZOLE SODIUM [Suspect]
     Active Substance: PANTOPRAZOLE SODIUM
     Route: 059
  161. PANTOPRAZOLE SODIUM [Suspect]
     Active Substance: PANTOPRAZOLE SODIUM
     Route: 065
  162. PANTOPRAZOLE SODIUM [Suspect]
     Active Substance: PANTOPRAZOLE SODIUM
     Route: 065
  163. PANTOPRAZOLE SODIUM [Suspect]
     Active Substance: PANTOPRAZOLE SODIUM
     Route: 065
  164. PANTOPRAZOLE SODIUM [Suspect]
     Active Substance: PANTOPRAZOLE SODIUM
     Route: 048
  165. LAMICTAL [Suspect]
     Active Substance: LAMOTRIGINE
     Indication: Product used for unknown indication
     Dosage: 50 MG, Q12H
     Route: 048
  166. DOMPERIDONE MALEATE [Suspect]
     Active Substance: DOMPERIDONE MALEATE
     Indication: Product used for unknown indication
     Dosage: 1 DOSAGE FORM, QD
     Route: 065
  167. NAPROXEN [Suspect]
     Active Substance: NAPROXEN
     Indication: Rheumatoid arthritis
     Dosage: 2 DOSAGE FORM, Q12H
     Route: 065
  168. NAPROXEN [Suspect]
     Active Substance: NAPROXEN
     Dosage: 1 DOSAGE FORM, Q12H
     Route: 065
  169. NAPROXEN [Suspect]
     Active Substance: NAPROXEN
     Route: 065
  170. NAPROXEN [Suspect]
     Active Substance: NAPROXEN
     Route: 065
  171. TOPICORT [Suspect]
     Active Substance: DESOXIMETASONE
     Indication: Rheumatoid arthritis
     Dosage: 1 DOSAGE FORM, Q12H
     Route: 065
  172. TOPICORT [Suspect]
     Active Substance: DESOXIMETASONE
     Route: 065
  173. TOPICORT [Suspect]
     Active Substance: DESOXIMETASONE
     Dosage: 25 MG, Q12H
     Route: 065
  174. TOPICORT [Suspect]
     Active Substance: DESOXIMETASONE
     Dosage: 3 MG, QD
     Route: 065
  175. TOPICORT [Suspect]
     Active Substance: DESOXIMETASONE
     Route: 065
  176. TRAZODONE [Suspect]
     Active Substance: TRAZODONE HYDROCHLORIDE
     Indication: Product used for unknown indication
     Dosage: 2 DOSAGE FORM, QD
     Route: 065
  177. CETIRIZINE [Suspect]
     Active Substance: CETIRIZINE HYDROCHLORIDE
     Indication: Systemic lupus erythematosus
     Dosage: 1 DOSAGE FORM, QD
     Route: 065
  178. CETIRIZINE [Suspect]
     Active Substance: CETIRIZINE HYDROCHLORIDE
     Dosage: 3 DOSAGE FORM, QD
     Route: 065
  179. CETIRIZINE [Suspect]
     Active Substance: CETIRIZINE HYDROCHLORIDE
     Route: 048
  180. CETIRIZINE [Suspect]
     Active Substance: CETIRIZINE HYDROCHLORIDE
     Route: 065
  181. DOMPERIDONE\PANTOPRAZOLE SODIUM [Suspect]
     Active Substance: DOMPERIDONE\PANTOPRAZOLE SODIUM
     Indication: Product used for unknown indication
     Route: 065
  182. TOPIRAMATE [Suspect]
     Active Substance: TOPIRAMATE
     Indication: Migraine
     Dosage: 1 MG, QD
     Route: 065
  183. TOPIRAMATE [Suspect]
     Active Substance: TOPIRAMATE
     Dosage: 3 MG, QD
     Route: 065
  184. TOPIRAMATE [Suspect]
     Active Substance: TOPIRAMATE
     Route: 048
  185. TOPIRAMATE [Suspect]
     Active Substance: TOPIRAMATE
     Dosage: 25 MG, QD
     Route: 065
  186. TOPIRAMATE [Suspect]
     Active Substance: TOPIRAMATE
     Route: 065
  187. TOPIRAMATE [Suspect]
     Active Substance: TOPIRAMATE
     Route: 065
  188. NAPROXEN SODIUM [Suspect]
     Active Substance: NAPROXEN SODIUM
     Indication: Rheumatoid arthritis
     Route: 065
  189. NAPROXEN SODIUM [Suspect]
     Active Substance: NAPROXEN SODIUM
     Route: 065
  190. GLUCOSAMINE [Suspect]
     Active Substance: GLUCOSAMINE
     Indication: Rheumatoid arthritis
     Route: 048
  191. GLUCOSAMINE [Suspect]
     Active Substance: GLUCOSAMINE
     Route: 065
  192. KEVZARA [Suspect]
     Active Substance: SARILUMAB
     Indication: Rheumatoid arthritis
     Route: 065
  193. LYRICA [Suspect]
     Active Substance: PREGABALIN
     Indication: Product used for unknown indication
     Route: 065
  194. BORAGE OIL [Suspect]
     Active Substance: BORAGE OIL
     Indication: Synovitis
     Route: 058
  195. BORAGE OIL [Suspect]
     Active Substance: BORAGE OIL
     Route: 058
  196. BORAGE OIL [Suspect]
     Active Substance: BORAGE OIL
     Route: 042
  197. CHOLECALCIFEROL [Suspect]
     Active Substance: CHOLECALCIFEROL
     Indication: Inflammation
     Route: 048
  198. CHOLECALCIFEROL [Suspect]
     Active Substance: CHOLECALCIFEROL
     Route: 048
  199. CHOLECALCIFEROL [Suspect]
     Active Substance: CHOLECALCIFEROL
     Route: 048
  200. DILTIAZEM [Suspect]
     Active Substance: DILTIAZEM
     Indication: Product used for unknown indication
     Route: 048

REACTIONS (30)
  - Diarrhoea [Fatal]
  - Fibromyalgia [Fatal]
  - Vomiting [Fatal]
  - Wheezing [Fatal]
  - Joint range of motion decreased [Fatal]
  - Helicobacter infection [Fatal]
  - General physical health deterioration [Fatal]
  - Duodenal ulcer perforation [Fatal]
  - Wound infection [Fatal]
  - Blister [Fatal]
  - Breast cancer stage III [Fatal]
  - Type 2 diabetes mellitus [Fatal]
  - Depression [Fatal]
  - Anti-cyclic citrullinated peptide antibody positive [Fatal]
  - Abdominal discomfort [Fatal]
  - Alopecia [Fatal]
  - Arthralgia [Fatal]
  - Wound [Fatal]
  - Systemic lupus erythematosus [Fatal]
  - Synovitis [Fatal]
  - Swelling [Fatal]
  - Pericarditis [Fatal]
  - Pemphigus [Fatal]
  - Hand deformity [Fatal]
  - Glossodynia [Fatal]
  - Rash [Fatal]
  - Live birth [Fatal]
  - Maternal exposure during pregnancy [Fatal]
  - Drug intolerance [Fatal]
  - Intentional product use issue [Fatal]
